FAERS Safety Report 8866467 (Version 1)
Quarter: 2012Q4

REPORT INFORMATION
  Report Type: 
  Country: US (occurrence: US)
  Receive Date: 20121025
  Receipt Date: 20121025
  Transmission Date: 20130627
  Serious: Yes (Other)
  Sender: FDA-Public Use
  Company Number: US-TEVA-366581USA

PATIENT
  Age: 8 None
  Sex: Female

DRUGS (1)
  1. TREANDA [Suspect]
     Indication: LYMPHOMA

REACTIONS (1)
  - Neutropenia [Not Recovered/Not Resolved]
